FAERS Safety Report 18642416 (Version 1)
Quarter: 2020Q4

REPORT INFORMATION
  Report Type: Spontaneous
  Country: IT (occurrence: IT)
  Receive Date: 20201221
  Receipt Date: 20201221
  Transmission Date: 20210114
  Serious: Yes (Hospitalization)
  Sender: FDA-Public Use
  Company Number: IT-CELLTRION-2020-IT-000248

PATIENT
  Age: 24 Year
  Sex: Female

DRUGS (1)
  1. LINEZOLID TABLETS (NON-SPECIFIC) [Suspect]
     Active Substance: LINEZOLID
     Indication: PNEUMONIA STAPHYLOCOCCAL
     Dosage: 600 MG TWICE DAILY

REACTIONS (4)
  - Lactic acidosis [Recovered/Resolved]
  - Neuropathy peripheral [Unknown]
  - Rhabdomyolysis [Recovered/Resolved]
  - Optic neuropathy [Unknown]
